FAERS Safety Report 15636733 (Version 1)
Quarter: 2018Q4

REPORT INFORMATION
  Report Type: Spontaneous
  Country: US (occurrence: US)
  Receive Date: 20181120
  Receipt Date: 20181120
  Transmission Date: 20190205
  Serious: No
  Sender: FDA-Public Use
  Company Number: US-GLAXOSMITHKLINE-US2018GSK208782

PATIENT
  Age: 63 Year
  Sex: Female

DRUGS (2)
  1. WELLBUTRIN XL [Suspect]
     Active Substance: BUPROPION HYDROCHLORIDE
     Indication: PAIN MANAGEMENT
     Dosage: 150 MG, BID
     Route: 048
     Dates: start: 2013
  2. BUPROPION HYDROCHLORIDE XL PROLONGED-RELEASE TABLET [Suspect]
     Active Substance: BUPROPION HYDROCHLORIDE
     Indication: PAIN MANAGEMENT
     Dosage: 300 MG, 1D
     Route: 048

REACTIONS (4)
  - Product use in unapproved indication [Unknown]
  - Product substitution issue [Unknown]
  - Drug ineffective for unapproved indication [Unknown]
  - Insurance issue [Unknown]
